FAERS Safety Report 5160164-1 (Version None)
Quarter: 2006Q4

REPORT INFORMATION
  Report Type: 
  Country: None (occurrence: None)
  Receive Date: 20061129
  Receipt Date: 20061030
  Transmission Date: 20070319
  Serious: Yes (Hospitalization)
  Sender: FDA-Public Use
  Company Number: FR-BRISTOL-MYERS SQUIBB COMPANY-13561667

PATIENT
  Age: 78 Year
  Sex: Female

DRUGS (8)
  1. COUMADIN [Suspect]
     Route: 048
     Dates: end: 20060710
  2. GLUCOPHAGE [Suspect]
     Route: 048
     Dates: end: 20060710
  3. HEMIGOXINE NATIVELLE [Suspect]
     Route: 048
     Dates: end: 20060710
  4. ZESTRIL [Suspect]
     Dates: end: 20060710
  5. LASIX [Suspect]
     Dates: end: 20060710
  6. OMEPRAZOLE [Concomitant]
     Dates: end: 20060710
  7. AMLOR [Concomitant]
     Dates: end: 20060710
  8. LEVOTHYROXINE SODIUM [Concomitant]
     Dates: end: 20060710

REACTIONS (3)
  - FALL [None]
  - PROTHROMBIN TIME SHORTENED [None]
  - RENAL FAILURE ACUTE [None]
